FAERS Safety Report 4317959-3 (Version None)
Quarter: 2004Q1

REPORT INFORMATION
  Report Type: 
  Country: None (occurrence: None)
  Receive Date: 20040316
  Receipt Date: 20040303
  Transmission Date: 20041129
  Serious: Yes (Other)
  Sender: FDA-Public Use
  Company Number: NL-GLAXOSMITHKLINE-B0325418A

PATIENT
  Age: 78 Year
  Sex: Female
  Weight: 84 kg

DRUGS (6)
  1. ROSIGLITAZONE MALEATE [Suspect]
     Indication: DIABETES MELLITUS
     Dosage: 4MG PER DAY
     Dates: start: 20031128, end: 20040204
  2. GLYBURIDE [Concomitant]
  3. INSULIN [Concomitant]
  4. LISINOPRIL [Concomitant]
  5. TRIAMTERENE + EPITHIAZIDE [Concomitant]
  6. METHIMAZOLE [Concomitant]

REACTIONS (3)
  - ABASIA [None]
  - HYPOGLYCAEMIA [None]
  - OEDEMA PERIPHERAL [None]
